FAERS Safety Report 8885590 (Version 3)
Quarter: 2012Q4

REPORT INFORMATION
  Report Type: 
  Country: US (occurrence: US)
  Receive Date: 20121101
  Receipt Date: 20121213
  Transmission Date: 20130627
  Serious: Yes (Other)
  Sender: FDA-Public Use
  Company Number: US-PFIZER INC-2012269513

PATIENT
  Age: 37 Year
  Sex: Female
  Weight: 65.76 kg

DRUGS (8)
  1. CELEBREX [Suspect]
     Indication: OSTEOARTHRITIS
     Dosage: 200 mg, QD
     Route: 048
     Dates: end: 201206
  2. CELEBREX [Suspect]
     Indication: CHONDROMALACIA
  3. CELEBREX [Suspect]
     Indication: MENISCUS TEAR
  4. LYRICA [Concomitant]
     Indication: FIBROMYALGIA
     Dosage: 300 mg, QHS
  5. SAVELLA [Concomitant]
     Indication: FIBROMYALGIA
     Dosage: 100 mg, 2x/day
  6. LIDODERM PATCH [Concomitant]
     Dosage: UNK (patch), as needed
  7. REQUIP [Concomitant]
     Dosage: 0.5 mg, QHS PRN
  8. DOXEPIN [Concomitant]
     Dosage: 10 mg, QHS

REACTIONS (6)
  - Joint injury [Not Recovered/Not Resolved]
  - Ligament rupture [Not Recovered/Not Resolved]
  - Meniscus injury [Not Recovered/Not Resolved]
  - Chondromalacia [Not Recovered/Not Resolved]
  - Contusion [Not Recovered/Not Resolved]
  - Swelling [Not Recovered/Not Resolved]
